FAERS Safety Report 8573800-4 (Version None)
Quarter: 2012Q3

REPORT INFORMATION
  Report Type: 
  Country: None (occurrence: None)
  Receive Date: 20120806
  Receipt Date: 20120727
  Transmission Date: 20120928
  Serious: Yes (Hospitalization, Disabling, Other)
  Sender: FDA-Public Use
  Company Number: US-009507513-2011SP046645

PATIENT

DRUGS (3)
  1. MINERALS (UNSPECIFIED) (+) VITAMINS (UNSPECIFIED) [Concomitant]
     Indication: VITAMIN SUPPLEMENTATION
     Dosage: 1 DF, QD
     Dates: start: 20080801
  2. NUVARING [Suspect]
     Indication: CONTRACEPTION
     Dates: start: 20030101, end: 20080801
  3. NUVARING [Suspect]
     Dates: end: 20081001

REACTIONS (17)
  - CEREBROVASCULAR ACCIDENT [None]
  - MIGRAINE [None]
  - NECK PAIN [None]
  - URTICARIA [None]
  - NASOPHARYNGITIS [None]
  - MUSCULOSKELETAL PAIN [None]
  - CERVICITIS [None]
  - CERVICAL DYSPLASIA [None]
  - PAPILLOMA VIRAL INFECTION [None]
  - HEADACHE [None]
  - GASTRITIS [None]
  - HYDROCEPHALUS [None]
  - HAEMORRHAGE INTRACRANIAL [None]
  - BRONCHOSPASM [None]
  - PALPITATIONS [None]
  - HYPERSENSITIVITY [None]
  - GASTRIC DISORDER [None]
